FAERS Safety Report 21592172 (Version 2)
Quarter: 2023Q1

REPORT INFORMATION
  Report Type: Report from Study
  Country: US (occurrence: US)
  Receive Date: 20221114
  Receipt Date: 20230310
  Transmission Date: 20230418
  Serious: No
  Sender: FDA-Public Use
  Company Number: US-ABBVIE-4133916

PATIENT
  Age: 34 Year
  Sex: Female

DRUGS (2)
  1. HUMIRA [Suspect]
     Active Substance: ADALIMUMAB
     Indication: Hidradenitis
     Dosage: CITRATE FREE, DISCONTINUED IN 2022
     Route: 058
     Dates: start: 20220715
  2. HUMIRA [Suspect]
     Active Substance: ADALIMUMAB
     Route: 058
     Dates: start: 20221026

REACTIONS (3)
  - Hidradenitis [Recovering/Resolving]
  - Gastroenteritis viral [Recovering/Resolving]
  - Hidradenitis [Recovered/Resolved]

NARRATIVE: CASE EVENT DATE: 20220905
